FAERS Safety Report 25727272 (Version 1)
Quarter: 2025Q3

REPORT INFORMATION
  Report Type: Spontaneous
  Country: US (occurrence: None)
  Receive Date: 20250825
  Receipt Date: 20250825
  Transmission Date: 20251020
  Serious: Yes (Hospitalization)
  Sender: FDA-CTU
  Company Number: None

PATIENT

DRUGS (4)
  1. FOSPHENYTOIN [Suspect]
     Active Substance: FOSPHENYTOIN
  2. LORAZEPAM [Suspect]
     Active Substance: LORAZEPAM
  3. KEPPRA [Suspect]
     Active Substance: LEVETIRACETAM
  4. LORAZEPAM [Suspect]
     Active Substance: LORAZEPAM

REACTIONS (3)
  - Status epilepticus [None]
  - Hypotension [None]
  - Pulse absent [None]

NARRATIVE: CASE EVENT DATE: 20221027
